FAERS Safety Report 6031827-0 (Version None)
Quarter: 2009Q1

REPORT INFORMATION
  Report Type: 
  Country: None (occurrence: None)
  Receive Date: 20090108
  Receipt Date: 20081231
  Transmission Date: 20090719
  Serious: Yes (Hospitalization)
  Sender: FDA-Public Use
  Company Number: DE-BIOGENIDEC-2008BI028116

PATIENT
  Age: 35 Year
  Sex: Female

DRUGS (4)
  1. TYSABRI [Suspect]
     Indication: MULTIPLE SCLEROSIS
     Route: 042
     Dates: start: 20061208, end: 20061208
  2. MCP DROPS [Concomitant]
     Indication: NAUSEA
     Route: 048
     Dates: start: 20061101
  3. NEXIUM [Concomitant]
     Indication: GASTRITIS
     Route: 048
     Dates: start: 20061101
  4. IDEOS [Concomitant]
     Indication: PROPHYLAXIS
     Route: 048
     Dates: start: 20061101

REACTIONS (3)
  - COMA [None]
  - SEPSIS [None]
  - STATUS EPILEPTICUS [None]
